FAERS Safety Report 10393333 (Version 2)
Quarter: 2015Q2

REPORT INFORMATION
  Report Type: Report from Study
  Country: US (occurrence: US)
  Receive Date: 20140819
  Receipt Date: 20150618
  Transmission Date: 20150821
  Serious: Yes (Death)
  Sender: FDA-Public Use
  Company Number: US-GILEAD-2014-0112245

PATIENT
  Age: 88 Year
  Sex: Female

DRUGS (15)
  1. SUCRALFATE. [Concomitant]
     Active Substance: SUCRALFATE
  2. PREDNISONE. [Concomitant]
     Active Substance: PREDNISONE
  3. FENTANYL. [Concomitant]
     Active Substance: FENTANYL
  4. SPIRIVA [Concomitant]
     Active Substance: TIOTROPIUM BROMIDE MONOHYDRATE
  5. PLAQUENIL [Concomitant]
     Active Substance: HYDROXYCHLOROQUINE SULFATE
  6. REMERON [Concomitant]
     Active Substance: MIRTAZAPINE
  7. LOSARTAN [Concomitant]
     Active Substance: LOSARTAN
  8. REVATIO [Concomitant]
     Active Substance: SILDENAFIL CITRATE
  9. NEURONTIN [Concomitant]
     Active Substance: GABAPENTIN
  10. LISINOPRIL. [Concomitant]
     Active Substance: LISINOPRIL
  11. PROTONIX [Concomitant]
     Active Substance: PANTOPRAZOLE SODIUM
  12. IRON [Concomitant]
     Active Substance: IRON
  13. AMBRISENTAN [Suspect]
     Active Substance: AMBRISENTAN
     Indication: PULMONARY ARTERIAL HYPERTENSION
     Dosage: 10 MG, QD
     Route: 065
     Dates: start: 20110113, end: 20140723
  14. ADVAIR HFA [Concomitant]
     Active Substance: FLUTICASONE PROPIONATE\SALMETEROL XINAFOATE
  15. HYDROCHLOROTHIAZIDE. [Concomitant]
     Active Substance: HYDROCHLOROTHIAZIDE

REACTIONS (2)
  - Disease progression [Fatal]
  - Chronic obstructive pulmonary disease [Fatal]

NARRATIVE: CASE EVENT DATE: 20140723
